FAERS Safety Report 9375094 (Version 1)
Quarter: 2013Q2

REPORT INFORMATION
  Report Type: Spontaneous
  Country: US (occurrence: US)
  Receive Date: 20130628
  Receipt Date: 20130628
  Transmission Date: 20140414
  Serious: No
  Sender: FDA-Public Use
  Company Number: US-PFIZER INC-2013190508

PATIENT
  Sex: Female

DRUGS (3)
  1. ADVIL LIQUI-GELS [Suspect]
     Indication: PAIN
     Dosage: 200 MG, FIVE TIMES A DAY
     Route: 048
     Dates: start: 20130619, end: 201306
  2. ADVIL LIQUI-GELS [Suspect]
     Dosage: 200 MG, SIX TIMES A DAY
     Route: 048
     Dates: start: 201306
  3. ADVIL LIQUI-GELS [Suspect]
     Dosage: 200 MG, UNK
     Route: 048
     Dates: start: 201306

REACTIONS (2)
  - Drug ineffective [Unknown]
  - Pollakiuria [Unknown]
